FAERS Safety Report 5100097-X (Version None)
Quarter: 2006Q3

REPORT INFORMATION
  Report Type: 
  Country: None (occurrence: None)
  Receive Date: 20060908
  Receipt Date: 20060905
  Transmission Date: 20061208
  Serious: Yes (Life-Threatening)
  Sender: FDA-Public Use
  Company Number: JP-BOEHRINGER INGELHEIM PHARMACEUTICALS, INC.-2006-BP-10509YA

PATIENT
  Sex: Male
  Weight: 79.5 kg

DRUGS (9)
  1. TAMSULOSIN HCL [Suspect]
     Indication: BENIGN PROSTATIC HYPERPLASIA
     Route: 048
     Dates: start: 20060825, end: 20060829
  2. TAMSULOSIN HCL [Suspect]
     Route: 048
     Dates: start: 20060830
  3. TAMSULOSIN HCL [Suspect]
     Route: 048
     Dates: start: 20020821, end: 20060824
  4. BUFFERIN [Suspect]
     Route: 048
     Dates: start: 20060825, end: 20060829
  5. BUFFERIN [Suspect]
     Route: 048
  6. BUFFERIN [Suspect]
     Route: 048
     Dates: start: 20050827, end: 20060824
  7. LIPITOR [Concomitant]
     Dates: start: 20060119
  8. ADALAT [Concomitant]
     Dates: start: 20020724
  9. URINORN [Concomitant]
     Dates: start: 19910621

REACTIONS (9)
  - AMNESIA [None]
  - ANAEMIA [None]
  - COGNITIVE DISORDER [None]
  - DUODENAL ULCER [None]
  - GASTROINTESTINAL HAEMORRHAGE [None]
  - INCORRECT DOSE ADMINISTERED [None]
  - LOSS OF CONSCIOUSNESS [None]
  - MEDICATION ERROR [None]
  - MELAENA [None]
